FAERS Safety Report 25540582 (Version 1)
Quarter: 2025Q3

REPORT INFORMATION
  Report Type: Spontaneous
  Country: US (occurrence: None)
  Receive Date: 20250710
  Receipt Date: 20250710
  Transmission Date: 20251020
  Serious: Yes (Hospitalization, Disabling, Other)
  Sender: FDA-CTU
  Company Number: None

PATIENT
  Age: 72 Year
  Sex: Female
  Weight: 56.25 kg

DRUGS (29)
  1. LEVAQUIN [Suspect]
     Active Substance: LEVOFLOXACIN
     Indication: Urinary tract infection
     Dosage: OTHER QUANTITY : 1 CAPSULE(S);?FREQUENCY : DAILY;?
     Route: 048
     Dates: start: 20190915, end: 20190917
  2. MIDODRINE [Concomitant]
     Active Substance: MIDODRINE
  3. FLONASE [Concomitant]
     Active Substance: FLUTICASONE PROPIONATE
  4. KETOTIFEN [Concomitant]
     Active Substance: KETOTIFEN
  5. ULTRA LOW DOSE LDN [Concomitant]
  6. NADH [Concomitant]
     Active Substance: NADH
  7. COENZYME Q10 [Concomitant]
     Active Substance: DIETARY SUPPLEMENT\UBIDECARENONE
  8. PQQ [Concomitant]
  9. DIETARY SUPPLEMENT [Concomitant]
     Active Substance: DIETARY SUPPLEMENT
  10. DEMANNOSE [Concomitant]
     Active Substance: DEMANNOSE
  11. DAO [Concomitant]
  12. ZYRTEC [Concomitant]
     Active Substance: CETIRIZINE HYDROCHLORIDE
  13. PEPCID [Concomitant]
     Active Substance: FAMOTIDINE
  14. LUMBROKINASE [Concomitant]
  15. HYDROGEN WATER [Concomitant]
  16. MOLYBDENUM [Concomitant]
     Active Substance: MOLYBDENUM
  17. PHOSPHOTIDYLCHOLINE [Concomitant]
  18. DIETARY SUPPLEMENT [Concomitant]
     Active Substance: DIETARY SUPPLEMENT
  19. B COMPLEX (METHYLATED) [Concomitant]
  20. MINERALS [Concomitant]
     Active Substance: MINERALS
  21. VITAMIN D NOS [Concomitant]
     Active Substance: CHOLECALCIFEROL\ERGOCALCIFEROL
  22. JWH-018 [Concomitant]
     Active Substance: JWH-018
  23. CALCIUM [Concomitant]
     Active Substance: CALCIUM
  24. ZINC [Concomitant]
     Active Substance: ZINC
  25. ELECTROLYTES NOS [Concomitant]
     Active Substance: ELECTROLYTES NOS
  26. MAGNESIUM [Concomitant]
     Active Substance: MAGNESIUM
  27. TAURINE [Concomitant]
     Active Substance: TAURINE
  28. PEA [Concomitant]
     Active Substance: PEA
  29. PROBIOTICS NOS [Concomitant]
     Active Substance: PROBIOTICS NOS

REACTIONS (13)
  - Headache [None]
  - Paraesthesia [None]
  - Thyroid pain [None]
  - Toxic encephalopathy [None]
  - Migraine [None]
  - Head discomfort [None]
  - Neuralgia [None]
  - Tendonitis [None]
  - Orthostatic intolerance [None]
  - Dysbiosis [None]
  - Thyroiditis [None]
  - Mitral valve incompetence [None]
  - Loss of personal independence in daily activities [None]

NARRATIVE: CASE EVENT DATE: 20190915
